FAERS Safety Report 4877614-8 (Version None)
Quarter: 2006Q1

REPORT INFORMATION
  Report Type: 
  Country: None (occurrence: None)
  Receive Date: 20060109
  Receipt Date: 20060109
  Transmission Date: 20060701
  Serious: Yes (Life-Threatening)
  Sender: FDA-Public Use
  Company Number: None

PATIENT
  Sex: Male
  Weight: 97.5234 kg

DRUGS (2)
  1. LIPITOR [Suspect]
     Dosage: 1 DAY
  2. ZOCOR [Suspect]
     Dosage: 1 DAT

REACTIONS (2)
  - HEPATIC ENZYME ABNORMAL [None]
  - MUSCLE DISORDER [None]
